FAERS Safety Report 10470365 (Version 1)
Quarter: 2014Q3

REPORT INFORMATION
  Report Type: Spontaneous
  Country: US (occurrence: None)
  Receive Date: 20140909
  Receipt Date: 20140909
  Transmission Date: 20150326
  Serious: Yes (Other)
  Sender: FDA-Public Use
  Company Number: 1348331

PATIENT
  Age: 77 Year
  Sex: Male

DRUGS (1)
  1. LUCENTIS [Suspect]
     Active Substance: RANIBIZUMAB
     Indication: AGE-RELATED MACULAR DEGENERATION
     Dosage: 0.5 MG, 1 IN 2 M), INTRAVITREAL
     Dates: start: 20140130

REACTIONS (5)
  - Retinal detachment [None]
  - Visual acuity reduced [None]
  - Endophthalmitis [None]
  - Retinopathy proliferative [None]
  - Pain [None]

NARRATIVE: CASE EVENT DATE: 20140201
